FAERS Safety Report 23871205 (Version 1)
Quarter: 2024Q2

REPORT INFORMATION
  Report Type: Spontaneous
  Country: US (occurrence: US)
  Receive Date: 20240519
  Receipt Date: 20240519
  Transmission Date: 20240716
  Serious: No
  Sender: FDA-Public Use
  Company Number: US-SA-SAC20240513000071

PATIENT
  Age: 54 Year
  Sex: Female
  Weight: 85 kg

DRUGS (5)
  1. DUPIXENT [Suspect]
     Active Substance: DUPILUMAB
     Indication: Dermatitis atopic
     Dosage: 300MG , QOW
     Route: 058
     Dates: start: 202312, end: 202402
  2. RINVOQ [Concomitant]
     Active Substance: UPADACITINIB
  3. TACROLIMUS [Concomitant]
     Active Substance: TACROLIMUS
  4. CLOCORTOLONE PIVALATE [Concomitant]
     Active Substance: CLOCORTOLONE PIVALATE
  5. XYZAL [Concomitant]
     Active Substance: LEVOCETIRIZINE DIHYDROCHLORIDE

REACTIONS (2)
  - Sleep disorder due to a general medical condition [Not Recovered/Not Resolved]
  - Rash [Not Recovered/Not Resolved]

NARRATIVE: CASE EVENT DATE: 20231201
